FAERS Safety Report 9045885 (Version 1)
Quarter: 2013Q1

REPORT INFORMATION
  Report Type: Report from Study
  Country: US (occurrence: US)
  Receive Date: 20130201
  Receipt Date: 20130201
  Transmission Date: 20140127
  Serious: No
  Sender: FDA-Public Use
  Company Number: US-ABBOTT-12P-163-1021538-00

PATIENT
  Age: 19 None
  Sex: Female

DRUGS (1)
  1. HUMIRA [Suspect]
     Indication: CROHN^S DISEASE
     Dates: start: 20120823

REACTIONS (4)
  - Device malfunction [Unknown]
  - Injection site pain [Recovered/Resolved]
  - Injection site urticaria [Not Recovered/Not Resolved]
  - Injection site swelling [Not Recovered/Not Resolved]
